FAERS Safety Report 9163063 (Version 1)
Quarter: 2013Q1

REPORT INFORMATION
  Report Type: Spontaneous
  Country: US (occurrence: None)
  Receive Date: 20130313
  Receipt Date: 20130313
  Transmission Date: 20140127
  Serious: Yes (Other)
  Sender: FDA-Public Use
  Company Number: None

PATIENT
  Age: 41 Year
  Sex: Female
  Weight: 61.24 kg

DRUGS (1)
  1. TESTOSTERONE SL [Suspect]
     Indication: ANDROGEN DEFICIENCY
     Dosage: 0.5MG/0.2ML; 0.1 ML 2XDAY; PO
     Route: 048
     Dates: start: 20130202, end: 20130225

REACTIONS (2)
  - Amenorrhoea [None]
  - Muscle spasms [None]
